FAERS Safety Report 8019119-1 (Version None)
Quarter: 2011Q4

REPORT INFORMATION
  Report Type: 
  Country: None (occurrence: None)
  Receive Date: 20111227
  Receipt Date: 20111217
  Transmission Date: 20120403
  Serious: Yes (Hospitalization)
  Sender: FDA-Public Use
  Company Number: UTC-013384

PATIENT
  Age: 48 Year
  Sex: Female
  Weight: 56.6 kg

DRUGS (4)
  1. DIURETICS (DIURETICS) [Concomitant]
  2. LETAIRIS [Concomitant]
  3. ADCIRCA [Concomitant]
  4. TYVASO [Suspect]
     Indication: PULMONARY ARTERIAL HYPERTENSION
     Dosage: 72 MCG (18 MCG,4 IN 1 D),INHALATION
     Route: 055
     Dates: start: 20111206

REACTIONS (3)
  - PYREXIA [None]
  - HEART RATE INCREASED [None]
  - DYSPNOEA [None]
